FAERS Safety Report 25124119 (Version 2)
Quarter: 2025Q1

REPORT INFORMATION
  Report Type: Spontaneous
  Country: US (occurrence: US)
  Receive Date: 20250326
  Receipt Date: 20250326
  Transmission Date: 20250408
  Serious: Yes (Other)
  Sender: BOEHRINGER INGELHEIM
  Company Number: US-Komodo Health-a23aa000006ZFWzAAO

PATIENT
  Age: 5 Decade
  Sex: Female

DRUGS (2)
  1. JARDIANCE [Suspect]
     Active Substance: EMPAGLIFLOZIN
     Indication: Product used for unknown indication
  2. INSULIN NOS [Concomitant]
     Active Substance: INSULIN NOS
     Indication: Product used for unknown indication

REACTIONS (4)
  - Fournier^s gangrene [Unknown]
  - Blood glucose increased [Unknown]
  - Obesity [Unknown]
  - Glycosylated haemoglobin increased [Unknown]

NARRATIVE: CASE EVENT DATE: 20230101
